FAERS Safety Report 7543607-5 (Version None)
Quarter: 2011Q2

REPORT INFORMATION
  Report Type: 
  Country: None (occurrence: None)
  Receive Date: 20110613
  Receipt Date: 20021119
  Transmission Date: 20111010
  Serious: Yes (Death)
  Sender: FDA-Public Use
  Company Number: PHNU2002DE01280

PATIENT
  Sex: Female
  Weight: 39 kg

DRUGS (8)
  1. TRILEPTAL [Suspect]
     Dosage: 1050  MG/D
     Route: 048
     Dates: start: 20010910, end: 20021113
  2. TRILEPTAL [Suspect]
     Indication: EPILEPSY
     Dosage: 600 MG/D
     Route: 048
     Dates: start: 20010803, end: 20010813
  3. SIRTAL - SLOW RELEASE [Concomitant]
     Dosage: 800  MG/D
     Dates: end: 20010813
  4. TRILEPTAL [Suspect]
     Dosage: 750  MG/D
     Route: 048
     Dates: start: 20010814, end: 20020909
  5. SABRIL [Suspect]
     Indication: EPILEPSY
     Dosage: 1250  MG/D
     Route: 048
     Dates: start: 19960702
  6. CLONAZEPAM [Concomitant]
     Dosage: 1 DF/DAY
     Dates: end: 20011109
  7. SIRTAL - SLOW RELEASE [Concomitant]
     Dosage: 400 MG/DAY
     Dates: start: 20010814, end: 20010910
  8. TRILEPTAL [Suspect]
     Dosage: 1350  MG/D
     Route: 048
     Dates: start: 20011114

REACTIONS (2)
  - SUDDEN DEATH [None]
  - STATUS EPILEPTICUS [None]
